FAERS Safety Report 9275088 (Version 1)
Quarter: 2012Q4

REPORT INFORMATION
  Report Type: Spontaneous
  Country: IT (occurrence: None)
  Receive Date: 20121123
  Receipt Date: 20121123
  Transmission Date: 20130627
  Serious: Yes (Hospitalization)
  Sender: FDA-Public Use
  Company Number: 2012AP003922

PATIENT
  Age: 60 Year
  Sex: Female

DRUGS (3)
  1. ZOLPIDEM TARTRATE (ZOLPIDEM TARTRATE) [Suspect]
     Indication: DRUG USE FOR UNKNOWN INDICATION
     Route: 048
     Dates: start: 20121030, end: 20121030
  2. DELORAZEPAM (DELORAZEPAM) [Suspect]
     Indication: DRUG USE FOR UNKNOWN INDICATION
     Route: 048
     Dates: start: 20121030, end: 20121030
  3. FLUOXETINE HYDROCHLORIDE (FLUOXETINE HYDROCHLORIDE) [Concomitant]

REACTIONS (2)
  - Drug abuse [None]
  - Intentional self-injury [None]
